FAERS Safety Report 11733200 (Version 1)
Quarter: 2015Q4

REPORT INFORMATION
  Report Type: Spontaneous
  Country: US (occurrence: US)
  Receive Date: 20151110
  Receipt Date: 20151110
  Transmission Date: 20160304
  Serious: Yes (Hospitalization)
  Sender: FDA-Public Use
  Company Number: US-ELI_LILLY_AND_COMPANY-US201205003585

PATIENT
  Age: 58 Year
  Sex: Female

DRUGS (26)
  1. OSCAL [Concomitant]
     Active Substance: CALCIUM CARBONATE
  2. SENOKOT [Concomitant]
     Active Substance: SENNOSIDES
  3. OXYGEN. [Concomitant]
     Active Substance: OXYGEN
  4. FORTEO [Suspect]
     Active Substance: TERIPARATIDE
     Indication: OSTEOPOROSIS
     Dosage: 20 UG, QD
     Dates: start: 201203, end: 20120507
  5. SOMA [Concomitant]
     Active Substance: CARISOPRODOL
  6. EFFIENT [Concomitant]
     Active Substance: PRASUGREL HYDROCHLORIDE
  7. DUONEB [Concomitant]
     Active Substance: ALBUTEROL SULFATE\IPRATROPIUM BROMIDE
  8. VYTORIN [Concomitant]
     Active Substance: EZETIMIBE\SIMVASTATIN
  9. LISINOPRIL. [Concomitant]
     Active Substance: LISINOPRIL
  10. PHENERGAN [Concomitant]
     Active Substance: PROMETHAZINE HYDROCHLORIDE
  11. NEXIUM [Concomitant]
     Active Substance: ESOMEPRAZOLE MAGNESIUM
  12. BABY ASPIRIN [Concomitant]
     Active Substance: ASPIRIN
  13. NICODERM CQ [Concomitant]
     Active Substance: NICOTINE
  14. NITROGLYCERINE [Concomitant]
     Active Substance: NITROGLYCERIN
  15. PROVENTIL                               /USA/ [Concomitant]
  16. SPIRIVA [Concomitant]
     Active Substance: TIOTROPIUM BROMIDE MONOHYDRATE
  17. XANAX [Concomitant]
     Active Substance: ALPRAZOLAM
  18. FLUTICASONE PROPIONATE. [Concomitant]
     Active Substance: FLUTICASONE PROPIONATE
  19. ADVAIR HFA [Concomitant]
     Active Substance: FLUTICASONE PROPIONATE\SALMETEROL XINAFOATE
  20. LORTAB [Concomitant]
     Active Substance: ACETAMINOPHEN\HYDROCODONE BITARTRATE
  21. DEMEROL [Concomitant]
     Active Substance: MEPERIDINE HYDROCHLORIDE
  22. PREMARIN [Concomitant]
     Active Substance: ESTROGENS, CONJUGATED
  23. SINGULAIR [Concomitant]
     Active Substance: MONTELUKAST SODIUM
  24. NEURONTIN [Concomitant]
     Active Substance: GABAPENTIN
  25. PROZAC [Concomitant]
     Active Substance: FLUOXETINE HYDROCHLORIDE
  26. MULTIVITAMIN [Concomitant]
     Active Substance: VITAMINS

REACTIONS (9)
  - Dyspnoea [Unknown]
  - Pain in extremity [Unknown]
  - Nausea [Unknown]
  - Vomiting [Unknown]
  - Nervousness [Unknown]
  - Dizziness [Unknown]
  - Asthenia [Unknown]
  - Heart rate increased [Unknown]
  - Arthralgia [Unknown]

NARRATIVE: CASE EVENT DATE: 201203
